FAERS Safety Report 8796094 (Version 1)
Quarter: 2012Q4

REPORT INFORMATION
  Report Type: 
  Country: US (occurrence: US)
  Receive Date: 20120920
  Receipt Date: 20120920
  Transmission Date: 20130627
  Serious: Yes (Hospitalization, Other)
  Sender: FDA-Public Use
  Company Number: US-009507513-1209USA005896

PATIENT
  Age: 52 Year
  Sex: Female

DRUGS (2)
  1. SAPHRIS [Suspect]
     Route: 048
  2. METHIMAZOLE [Suspect]
     Route: 048

REACTIONS (4)
  - Hepatic failure [Unknown]
  - Renal failure acute [Unknown]
  - Mental status changes [Unknown]
  - Stevens-Johnson syndrome [Unknown]
